FAERS Safety Report 7376456-1 (Version None)
Quarter: 2011Q1

REPORT INFORMATION
  Report Type: 
  Country: None (occurrence: None)
  Receive Date: 20110325
  Receipt Date: 20110302
  Transmission Date: 20110831
  Serious: No
  Sender: FDA-Public Use
  Company Number: US-B.I. PHARMACEUTICALS,INC./RIDGEFIELD-2011-BP-06166BP

PATIENT
  Age: 63 Year
  Sex: Female

DRUGS (9)
  1. LEVOTHYROXINE SODIUM [Concomitant]
     Indication: WEIGHT
     Dosage: 25 MCG
  2. TOPROLOL [Concomitant]
     Indication: HYPERTENSION
     Dosage: 100 MG
  3. HYDROCHLOROTHIAZIDE [Concomitant]
     Indication: HYPERTENSION
     Dosage: 25 MG
  4. GLIPIZIDE [Concomitant]
     Indication: DIABETES MELLITUS
     Dosage: 10 MG
  5. CARDIZEM [Concomitant]
     Indication: HYPERTENSION
     Dosage: 360 MG
  6. METFORMIN HCL [Concomitant]
     Indication: DIABETES MELLITUS
     Dosage: 1000 MG
  7. LANTUS [Concomitant]
     Indication: DIABETES MELLITUS
     Dosage: 100 MG
  8. GABAPENTIN [Concomitant]
     Indication: PAIN
     Dosage: 600 MG
  9. PRADAXA [Suspect]
     Indication: ATRIAL FIBRILLATION
     Dosage: 300 MG
     Route: 048
     Dates: start: 20110201

REACTIONS (2)
  - NAUSEA [None]
  - CONSTIPATION [None]
